FAERS Safety Report 5281011-3 (Version None)
Quarter: 2007Q1

REPORT INFORMATION
  Report Type: 
  Country: None (occurrence: None)
  Receive Date: 20061229
  Receipt Date: 20060810
  Transmission Date: 20070707
  Serious: Yes (Other)
  Sender: FDA-Public Use
  Company Number: 2006UW15946

PATIENT
  Age: 65 Year
  Sex: Male
  Weight: 83.914 kg

DRUGS (2)
  1. CRESTOR [Suspect]
     Indication: BLOOD CHOLESTEROL INCREASED
     Dosage: 10 MG PO
     Route: 048
     Dates: start: 20060501
  2. CLONOPIN [Concomitant]

REACTIONS (1)
  - SCROTAL PAIN [None]
